FAERS Safety Report 25523949 (Version 1)
Quarter: 2025Q3

REPORT INFORMATION
  Report Type: Spontaneous
  Country: US (occurrence: None)
  Receive Date: 20250703
  Receipt Date: 20250703
  Transmission Date: 20251021
  Serious: Yes (Life-Threatening, Hospitalization, Disabling)
  Sender: FDA-CTU
  Company Number: None

PATIENT
  Age: 38 Year
  Sex: Female
  Weight: 52.65 kg

DRUGS (7)
  1. KEYTRUDA [Suspect]
     Active Substance: PEMBROLIZUMAB
     Indication: Immune enhancement therapy
     Dates: start: 20250602, end: 20250701
  2. KEYTRUDA [Suspect]
     Active Substance: PEMBROLIZUMAB
     Indication: Neoplasm malignant
  3. MORPHINE [Concomitant]
     Active Substance: MORPHINE
  4. COLCHICINE [Concomitant]
     Active Substance: COLCHICINE
  5. LORAZEPAM [Concomitant]
     Active Substance: LORAZEPAM
  6. TYLENOL [Concomitant]
     Active Substance: ACETAMINOPHEN
  7. DOCUSATE SODIUM [Concomitant]
     Active Substance: DOCUSATE SODIUM

REACTIONS (3)
  - Migraine [None]
  - Headache [None]
  - Crying [None]

NARRATIVE: CASE EVENT DATE: 20250620
